FAERS Safety Report 16821881 (Version 1)
Quarter: 2019Q3

REPORT INFORMATION
  Report Type: Spontaneous
  Country: CA (occurrence: CA)
  Receive Date: 20190918
  Receipt Date: 20190918
  Transmission Date: 20191005
  Serious: Yes (Other)
  Sender: FDA-Public Use
  Company Number: CA-PFIZER INC-2019397207

PATIENT
  Sex: Female

DRUGS (3)
  1. PREDNISONE. [Suspect]
     Active Substance: PREDNISONE
     Dosage: 10 MG, 1X/DAY
     Route: 048
  2. METHOTREXATE SODIUM. [Suspect]
     Active Substance: METHOTREXATE SODIUM
     Indication: RHEUMATOID ARTHRITIS
     Dosage: UNK UNK, WEEKLY
     Route: 065
  3. ARAVA [Suspect]
     Active Substance: LEFLUNOMIDE
     Dosage: 20 MG, 1X/DAY
     Route: 048

REACTIONS (6)
  - Cardiac failure congestive [Unknown]
  - Vomiting [Unknown]
  - Dyspnoea [Unknown]
  - Nausea [Unknown]
  - Diarrhoea [Unknown]
  - Abdominal discomfort [Unknown]
